FAERS Safety Report 6668699-7 (Version None)
Quarter: 2010Q2

REPORT INFORMATION
  Report Type: 
  Country: None (occurrence: None)
  Receive Date: 20100402
  Receipt Date: 20100324
  Transmission Date: 20101027
  Serious: Yes (Hospitalization)
  Sender: FDA-Public Use
  Company Number: 8052781

PATIENT
  Sex: Female
  Weight: 61.5 kg

DRUGS (13)
  1. CERTOLIZUMAB PEGOL (CERTOLIZUMAB PEGOL) [Suspect]
     Indication: RHEUMATOID ARTHRITIS
     Dosage: SEE IMAGE
     Route: 058
     Dates: start: 20080530, end: 20090821
  2. CERTOLIZUMAB PEGOL (CERTOLIZUMAB PEGOL) [Suspect]
     Indication: RHEUMATOID ARTHRITIS
     Dosage: SEE IMAGE
     Route: 058
     Dates: start: 20060630
  3. CERTOLIZUMAB PEGOL (CERTOLIZUMAB PEGOL) [Suspect]
     Indication: RHEUMATOID ARTHRITIS
     Dosage: SEE IMAGE
     Route: 058
     Dates: start: 20091102
  4. METHOTREXATE [Concomitant]
  5. COXTRAL [Concomitant]
  6. MEDROL [Concomitant]
  7. TRAMADOL HCL [Concomitant]
  8. ESTRADIOL [Concomitant]
  9. CALCIUM [Concomitant]
  10. COLECALCIFEROL [Concomitant]
  11. OMEPRAZOLE [Concomitant]
  12. GABAPENTIN [Concomitant]
  13. ANXIOLYTICS [Concomitant]

REACTIONS (1)
  - MENINGIOMA [None]
